FAERS Safety Report 16572676 (Version 3)
Quarter: 2020Q4

REPORT INFORMATION
  Report Type: Report from Study
  Country: JP (occurrence: JP)
  Receive Date: 20190715
  Receipt Date: 20201214
  Transmission Date: 20210113
  Serious: Yes (Death, Other)
  Sender: FDA-Public Use
  Company Number: JP-TAKEDA-2018TUS024408

PATIENT
  Age: 52 Year
  Sex: Male
  Weight: 47.35 kg

DRUGS (3)
  1. PONATINIB [Suspect]
     Active Substance: PONATINIB
     Indication: ACUTE LYMPHOCYTIC LEUKAEMIA
     Dosage: 45 MILLIGRAM, QD
     Route: 048
     Dates: start: 20171027, end: 20171102
  2. PONATINIB [Suspect]
     Active Substance: PONATINIB
     Dosage: 30 MILLIGRAM, QD
     Route: 048
     Dates: start: 20171111, end: 20171124
  3. PONATINIB [Suspect]
     Active Substance: PONATINIB
     Dosage: 15 MILLIGRAM, QD
     Route: 048
     Dates: start: 20171103, end: 20171110

REACTIONS (5)
  - White blood cell count increased [Fatal]
  - Blood lactate dehydrogenase increased [Not Recovered/Not Resolved]
  - Malaise [Recovered/Resolved]
  - Acute lymphocytic leukaemia [Fatal]
  - Blast cell count increased [Fatal]

NARRATIVE: CASE EVENT DATE: 20171110
